FAERS Safety Report 9411148 (Version 1)
Quarter: 2013Q3

REPORT INFORMATION
  Report Type: Spontaneous
  Country: US (occurrence: US)
  Receive Date: 20130721
  Receipt Date: 20130721
  Transmission Date: 20140515
  Serious: Yes (Hospitalization, Other)
  Sender: FDA-Public Use
  Company Number: PHEH2013US014975

PATIENT
  Age: 56 Year
  Sex: Female

DRUGS (12)
  1. DIOVAN [Suspect]
     Indication: ATRIAL FIBRILLATION
     Dosage: 80 MG, QD
     Route: 048
     Dates: start: 201301, end: 201303
  2. DIOVAN [Suspect]
     Dosage: 40 MG, DAILY
     Dates: start: 201306
  3. SINGULAIR [Concomitant]
  4. FUROSEMIDE [Concomitant]
     Dosage: UNK UKN, UNK
  5. METOPROLOL [Concomitant]
     Dosage: UNK UKN, UNK
  6. MULTI-VIT [Concomitant]
     Dosage: UNK UKN, UNK
  7. BAYER ASPIRIN [Concomitant]
     Dosage: UNK UKN, UNK
  8. CALCIUM [Concomitant]
     Dosage: UNK UKN, UNK
  9. IRON [Concomitant]
     Dosage: UNK UKN, UNK
  10. COUMADINE [Concomitant]
     Dosage: 5 MG, UNK
  11. COUMADINE [Concomitant]
     Dosage: 1 MG, UNK
  12. FLOVENT HFA [Concomitant]
     Dosage: UNK UKN, UNK

REACTIONS (8)
  - Interstitial lung disease [Unknown]
  - Pleural effusion [Unknown]
  - Pulmonary fibrosis [Unknown]
  - Dyspnoea [Unknown]
  - Cough [Unknown]
  - Lung disorder [Unknown]
  - Monoplegia [Unknown]
  - Gait disturbance [Unknown]
